FAERS Safety Report 13818013 (Version 1)
Quarter: 2017Q3

REPORT INFORMATION
  Report Type: Spontaneous
  Country: US (occurrence: US)
  Receive Date: 20170731
  Receipt Date: 20170731
  Transmission Date: 20171127
  Serious: Yes (Disabling)
  Sender: FDA-Public Use
  Company Number: US-ROCHE-619676

PATIENT
  Age: 69 Year
  Sex: Female
  Weight: 49 kg

DRUGS (5)
  1. ASA [Concomitant]
     Active Substance: ASPIRIN
     Route: 048
  2. AMBIEN CR [Concomitant]
     Active Substance: ZOLPIDEM TARTRATE
     Indication: INSOMNIA
     Route: 048
  3. BONIVA [Suspect]
     Active Substance: IBANDRONATE SODIUM
     Indication: OSTEOPOROSIS
     Route: 042
     Dates: start: 20070213, end: 200812
  4. DETROL LA [Concomitant]
     Active Substance: TOLTERODINE TARTRATE
     Dosage: INDICATION REPORTED: BLADDER
     Route: 048
  5. LIPITOR [Concomitant]
     Active Substance: ATORVASTATIN CALCIUM
     Indication: BLOOD CHOLESTEROL
     Dosage: FREQUENCY: QHS
     Route: 048

REACTIONS (7)
  - Injection site swelling [Not Recovered/Not Resolved]
  - Infusion site pain [Unknown]
  - Procedural complication [Unknown]
  - Tenosynovitis [Unknown]
  - Tendon disorder [Unknown]
  - Injection site extravasation [Unknown]
  - Injection site discolouration [Unknown]

NARRATIVE: CASE EVENT DATE: 20081217
